FAERS Safety Report 7481801-2 (Version None)
Quarter: 2011Q2

REPORT INFORMATION
  Report Type: 
  Country: None (occurrence: None)
  Receive Date: 20110516
  Receipt Date: 20110502
  Transmission Date: 20111010
  Serious: Yes (Death, Hospitalization)
  Sender: FDA-Public Use
  Company Number: US-ELI_LILLY_AND_COMPANY-US201012005064

PATIENT
  Sex: Female
  Weight: 88.435 kg

DRUGS (14)
  1. FORTEO [Suspect]
     Indication: OSTEOPOROSIS
     Dosage: 20 UG, QD
     Route: 065
  2. CALTRATE                           /00108001/ [Concomitant]
  3. LASIX [Concomitant]
  4. COREG [Concomitant]
  5. METAMUCIL-2 [Concomitant]
  6. ADVAIR DISKUS 100/50 [Concomitant]
  7. OXYGEN [Concomitant]
     Indication: CHRONIC OBSTRUCTIVE PULMONARY DISEASE
  8. COUMADIN [Concomitant]
  9. GLUCOPHAGE [Concomitant]
  10. TRILIPIX [Concomitant]
  11. LISINOPRIL [Concomitant]
  12. NORVASC [Suspect]
  13. COMBIVENT [Concomitant]
  14. PEPCID [Concomitant]

REACTIONS (3)
  - CARDIAC FAILURE CONGESTIVE [None]
  - DEATH [None]
  - CHRONIC OBSTRUCTIVE PULMONARY DISEASE [None]
